FAERS Safety Report 15781211 (Version 3)
Quarter: 2019Q1

REPORT INFORMATION
  Report Type: Spontaneous
  Country: JP (occurrence: JP)
  Receive Date: 20190102
  Receipt Date: 20190108
  Transmission Date: 20190417
  Serious: Yes (Death, Hospitalization, Other)
  Sender: FDA-Public Use
  Company Number: JP-SA-2018SA396727

PATIENT
  Age: 55 Year
  Sex: Female
  Weight: 51.7 kg

DRUGS (7)
  1. LASIX [Suspect]
     Active Substance: FUROSEMIDE
     Indication: SUICIDE ATTEMPT
     Dosage: 10 TABLETS OF 20 MG: 200 MG
     Route: 048
  2. BRATOGEN [Suspect]
     Active Substance: GLYBURIDE
     Indication: SUICIDE ATTEMPT
     Route: 048
  3. AMLODIPINE [Suspect]
     Active Substance: AMLODIPINE BESYLATE
     Indication: SUICIDE ATTEMPT
     Dosage: 85 MG; 17 TABLETS OF 5 MG
     Route: 048
  4. CILAZAPRIL MONOHYDRATE [Suspect]
     Active Substance: CILAZAPRIL MONOHYDRATE
     Indication: SUICIDE ATTEMPT
     Dosage: 27 MG; 27 TABLETS OF 1 MG
     Route: 048
  5. LIPITOR [Suspect]
     Active Substance: ATORVASTATIN CALCIUM
     Indication: SUICIDE ATTEMPT
     Dosage: UNK; 10 TABLETS
     Route: 048
  6. GLIBENCLAMIDE [Suspect]
     Active Substance: GLYBURIDE
     Indication: SUICIDE ATTEMPT
     Dosage: 2.5 MG
     Route: 048
  7. DIART [Suspect]
     Active Substance: AZOSEMIDE
     Indication: SUICIDE ATTEMPT
     Dosage: 960 MG; 16 TABLETS OF 60 MG
     Route: 048

REACTIONS (8)
  - Pulmonary haemorrhage [Fatal]
  - Chest pain [Fatal]
  - Cardiovascular insufficiency [Fatal]
  - Hypoglycaemia [Fatal]
  - Visceral oedema [Fatal]
  - Metabolic disorder [Fatal]
  - Intentional overdose [Fatal]
  - Cardio-respiratory arrest [Fatal]
